FAERS Safety Report 16559727 (Version 1)
Quarter: 2019Q3

REPORT INFORMATION
  Report Type: Spontaneous
  Country: US (occurrence: US)
  Receive Date: 20190710
  Receipt Date: 20190710
  Transmission Date: 20191004
  Serious: Yes (Hospitalization)
  Sender: FDA-Public Use
  Company Number: None

PATIENT
  Age: 56 Year
  Sex: Female

DRUGS (9)
  1. PANTOPRAZOLE TAB 40 MG [Concomitant]
  2. AUG BETAMET CRE 0.05% [Concomitant]
  3. GABAPENTIN TAB 600 MG [Concomitant]
  4. SUCRALFATE TAB 1 GM [Concomitant]
  5. CYANOCOBALAM INJ 1000 MCG [Concomitant]
  6. METHYLPRED TAB 4 MG [Concomitant]
  7. MELOXICAM TAB 15 MG [Concomitant]
  8. RANITIDINE TAB 150 MG [Concomitant]
  9. HUMIRA [Suspect]
     Active Substance: ADALIMUMAB
     Indication: RHEUMATOID ARTHRITIS
     Dosage: ?          OTHER FREQUENCY:ONCE WEEKLY;?
     Route: 058
     Dates: start: 20180118

REACTIONS (7)
  - Gastrointestinal disorder [None]
  - Dyspnoea [None]
  - Vomiting [None]
  - Nausea [None]
  - Dizziness [None]
  - Food allergy [None]
  - Therapy cessation [None]
